FAERS Safety Report 21700378 (Version 1)
Quarter: 2022Q4

REPORT INFORMATION
  Report Type: Spontaneous
  Country: US (occurrence: US)
  Receive Date: 20221208
  Receipt Date: 20221208
  Transmission Date: 20230113
  Serious: No
  Sender: FDA-Public Use
  Company Number: US-SA-SAC20221207000111

PATIENT
  Sex: Male

DRUGS (2)
  1. DUPIXENT [Suspect]
     Active Substance: DUPILUMAB
     Indication: Asthma
     Dosage: 300MG, QOW
     Route: 058
  2. DUPIXENT [Suspect]
     Active Substance: DUPILUMAB
     Indication: Gastritis

REACTIONS (5)
  - Injection site pain [Unknown]
  - Headache [Unknown]
  - Vomiting [Recovered/Resolved]
  - Product prescribing issue [Unknown]
  - Product use in unapproved indication [Unknown]
